FAERS Safety Report 21654056 (Version 1)
Quarter: 2022Q4

REPORT INFORMATION
  Report Type: Spontaneous
  Country: GB (occurrence: GB)
  Receive Date: 20221129
  Receipt Date: 20221129
  Transmission Date: 20230113
  Serious: Yes (Hospitalization, Other)
  Sender: FDA-Public Use
  Company Number: GB-MHRA-MED-202211121050002260-YZQRP

PATIENT
  Age: 76 Year
  Sex: Male
  Weight: 70 kg

DRUGS (6)
  1. ISOSORBIDE MONONITRATE [Suspect]
     Active Substance: ISOSORBIDE MONONITRATE
     Indication: Angina pectoris
     Dosage: 10 MILLIGRAM, TWO TIMES A DAY
     Route: 065
     Dates: start: 20200101
  2. NITROGLYCERIN [Suspect]
     Active Substance: NITROGLYCERIN
     Indication: Product used for unknown indication
     Dosage: UNK
     Route: 065
  3. ASPIRIN [Concomitant]
     Active Substance: ASPIRIN
     Indication: Product used for unknown indication
     Dosage: 75 MILLIGRAM
     Route: 065
  4. ATORVASTATIN [Concomitant]
     Active Substance: ATORVASTATIN
     Indication: Angina pectoris
     Dosage: 20 MILLIGRAM
     Route: 065
     Dates: start: 20200122
  5. AMLODIPINE [Concomitant]
     Active Substance: AMLODIPINE BESYLATE
     Indication: Angina pectoris
     Dosage: 5 MILLIGRAM
     Route: 065
     Dates: start: 20200101, end: 202002
  6. NEBIVOLOL [Concomitant]
     Active Substance: NEBIVOLOL
     Indication: Angina pectoris
     Dosage: 2.5 MILLIGRAM
     Route: 065
     Dates: start: 20200101

REACTIONS (5)
  - Blood pressure decreased [Unknown]
  - Dizziness postural [Recovering/Resolving]
  - Drug interaction [Unknown]
  - Heart rate irregular [Unknown]
  - Syncope [Unknown]

NARRATIVE: CASE EVENT DATE: 20200101
